FAERS Safety Report 14536472 (Version 4)
Quarter: 2018Q1

REPORT INFORMATION
  Report Type: Report from Study
  Country: US (occurrence: US)
  Receive Date: 20180215
  Receipt Date: 20180307
  Transmission Date: 20180509
  Serious: Yes (Hospitalization, Other)
  Sender: FDA-Public Use
  Company Number: US-BAYER-2018-017563

PATIENT
  Age: 66 Year
  Sex: Female

DRUGS (1)
  1. STIVARGA [Suspect]
     Active Substance: REGORAFENIB
     Indication: COLORECTAL CANCER METASTATIC
     Dosage: 160 MG, QD FRO 3 WEEKS ON 1 WEEK OFF
     Route: 048
     Dates: start: 20180125, end: 20180202

REACTIONS (17)
  - Dysphonia [None]
  - Rash [None]
  - Vaginal haemorrhage [Recovered/Resolved]
  - Feeding disorder [None]
  - Therapeutic response unexpected [Recovering/Resolving]
  - Pyrexia [None]
  - Musculoskeletal chest pain [None]
  - Stomatitis [None]
  - Renal pain [None]
  - Fatigue [None]
  - Chills [None]
  - Diarrhoea [None]
  - Back pain [None]
  - Delirium [None]
  - Urinary tract infection [None]
  - Exercise tolerance decreased [Not Recovered/Not Resolved]
  - Headache [None]

NARRATIVE: CASE EVENT DATE: 2018
